FAERS Safety Report 13278570 (Version 2)
Quarter: 2017Q2

REPORT INFORMATION
  Report Type: Spontaneous
  Country: US (occurrence: US)
  Receive Date: 20170228
  Receipt Date: 20170413
  Transmission Date: 20170830
  Serious: No
  Sender: FDA-Public Use
  Company Number: US-TAIHO ONCOLOGY INC-EU-2016-02165

PATIENT
  Age: 81 Year
  Sex: Male
  Weight: 85.28 kg

DRUGS (9)
  1. LONSURF [Suspect]
     Active Substance: TIPIRACIL HYDROCHLORIDE\TRIFLURIDINE
     Indication: COLON CANCER
     Route: 048
     Dates: start: 201606, end: 20161114
  2. FUROSEMIDE. [Concomitant]
     Active Substance: FUROSEMIDE
     Dosage: NI
  3. BETAMETHASONE/CLOTRIMAZOLE [Concomitant]
     Dosage: NI
  4. PARACETAMOL/HYDROCODONE BITARTRATE [Concomitant]
     Dosage: NI
  5. CLOPIDOGREL [Concomitant]
     Active Substance: CLOPIDOGREL BISULFATE
     Dosage: NI
  6. POTASSIUM CHLORIDE. [Concomitant]
     Active Substance: POTASSIUM CHLORIDE
     Dosage: NI
  7. CELECOXIB. [Concomitant]
     Active Substance: CELECOXIB
     Dosage: NI
  8. METOLAZONE. [Concomitant]
     Active Substance: METOLAZONE
     Dosage: NI
  9. MINOXIDIL. [Concomitant]
     Active Substance: MINOXIDIL
     Dosage: NI

REACTIONS (2)
  - Malaise [Recovered/Resolved]
  - Disease progression [Unknown]

NARRATIVE: CASE EVENT DATE: 2016
